FAERS Safety Report 4598035-1 (Version None)
Quarter: 2005Q1

REPORT INFORMATION
  Report Type: 
  Country: None (occurrence: None)
  Receive Date: 20050207
  Receipt Date: 20040115
  Transmission Date: 20050727
  Serious: Yes (Hospitalization)
  Sender: FDA-Public Use
  Company Number: MEDI-0001431

PATIENT
  Age: 46 Year
  Sex: Male
  Weight: 70.8 kg

DRUGS (6)
  1. ETHYOL [Suspect]
     Indication: RADIOTHERAPY
     Dosage: INTRAVENOUS
     Route: 042
     Dates: start: 20031125, end: 20040112
  2. RADIATION TREATMENT [Concomitant]
  3. SYNTHROID [Concomitant]
  4. ZANTAC [Concomitant]
  5. IBUPROFEN [Concomitant]
  6. CLARITIN [Concomitant]

REACTIONS (6)
  - BLISTER [None]
  - LIP ULCERATION [None]
  - SKIN EXFOLIATION [None]
  - STOMATITIS [None]
  - TONGUE ULCERATION [None]
  - TOXIC EPIDERMAL NECROLYSIS [None]
